FAERS Safety Report 6301189-X (Version None)
Quarter: 2009Q3

REPORT INFORMATION
  Report Type: 
  Country: None (occurrence: None)
  Receive Date: 20090807
  Receipt Date: 20090731
  Transmission Date: 20100115
  Serious: Yes (Hospitalization, Other)
  Sender: FDA-Public Use
  Company Number: PHHO2009SG08842

PATIENT
  Sex: Female
  Weight: 58.2 kg

DRUGS (1)
  1. STI571/CGP57148B T35717+CAPS [Suspect]
     Indication: GASTROINTESTINAL STROMAL TUMOUR
     Dosage: UNK

REACTIONS (13)
  - ABDOMINAL ADHESIONS [None]
  - ADHESIOLYSIS [None]
  - DUODENITIS [None]
  - FIBROSIS [None]
  - GASTRIC MUCOSAL LESION [None]
  - GASTRITIS [None]
  - GASTROINTESTINAL OEDEMA [None]
  - GASTROINTESTINAL STROMAL TUMOUR [None]
  - GASTROSTOMY [None]
  - MUSCLE DISORDER [None]
  - PERITONEAL DISORDER [None]
  - SUTURE RELATED COMPLICATION [None]
  - TUMOUR EXCISION [None]
